FAERS Safety Report 4975097-0 (Version None)
Quarter: 2006Q2

REPORT INFORMATION
  Report Type: 
  Country: None (occurrence: None)
  Receive Date: 20060418
  Receipt Date: 20060410
  Transmission Date: 20061013
  Serious: Yes (Hospitalization)
  Sender: FDA-Public Use
  Company Number: ES-AVENTIS-200613855GDDC

PATIENT
  Age: 90 Year
  Sex: Female

DRUGS (4)
  1. TAVANIC [Suspect]
     Indication: RESPIRATORY DISORDER
     Route: 048
     Dates: start: 20050406, end: 20050410
  2. FLAGYL [Suspect]
     Indication: ENTEROCOLITIS INFECTIOUS
     Route: 042
     Dates: start: 20050401, end: 20050410
  3. FLAGYL [Suspect]
     Indication: ENTERITIS
     Route: 042
     Dates: start: 20050401, end: 20050410
  4. FLAGYL [Suspect]
     Indication: GASTROENTERITIS
     Route: 042
     Dates: start: 20050401, end: 20050410

REACTIONS (1)
  - MUSCLE CONTRACTIONS INVOLUNTARY [None]
